FAERS Safety Report 6581264-5 (Version None)
Quarter: 2010Q1

REPORT INFORMATION
  Report Type: 
  Country: None (occurrence: None)
  Receive Date: 20100203
  Receipt Date: 20100118
  Transmission Date: 20100710
  Serious: Yes (Death, Other)
  Sender: FDA-Public Use
  Company Number: 2010BI002165

PATIENT
  Age: 68 Year
  Sex: Female

DRUGS (3)
  1. ZEVALIN [Suspect]
     Indication: NON-HODGKIN'S LYMPHOMA
     Dosage: 1X/IV
     Route: 042
     Dates: start: 20091215, end: 20091222
  2. CON MEDS [Concomitant]
  3. PREV MEDS [Concomitant]

REACTIONS (5)
  - DRUG INEFFECTIVE [None]
  - INTESTINAL PERFORATION [None]
  - NEOPLASM PROGRESSION [None]
  - PLATELET COUNT DECREASED [None]
  - SEPTIC SHOCK [None]
